FAERS Safety Report 7930278-9 (Version None)
Quarter: 2011Q4

REPORT INFORMATION
  Report Type: 
  Country: None (occurrence: None)
  Receive Date: 20111121
  Receipt Date: 20111111
  Transmission Date: 20120403
  Serious: Yes (Hospitalization)
  Sender: FDA-Public Use
  Company Number: CH-JNJFOC-20111105687

PATIENT
  Age: 89 Year
  Sex: Female
  Weight: 68 kg

DRUGS (6)
  1. ISOPTIN [Suspect]
     Indication: ATRIAL FLUTTER
     Route: 048
     Dates: start: 20110927, end: 20111024
  2. ISOPTIN [Suspect]
     Indication: ATRIAL FIBRILLATION
     Route: 048
     Dates: start: 20110927, end: 20111024
  3. XARELTO [Suspect]
     Indication: THROMBOSIS PROPHYLAXIS
     Route: 048
     Dates: start: 20110925, end: 20111024
  4. ACETAMINOPHEN [Suspect]
     Indication: PAIN
     Route: 048
     Dates: end: 20111024
  5. NOVALGIN [Concomitant]
  6. PANTOPRAZOLE SODIUM [Suspect]
     Indication: ILL-DEFINED DISORDER
     Route: 048
     Dates: start: 20110101

REACTIONS (1)
  - THROMBOCYTOPENIA [None]
